FAERS Safety Report 22532812 (Version 1)
Quarter: 2023Q2

REPORT INFORMATION
  Report Type: Spontaneous
  Country: DE (occurrence: DE)
  Receive Date: 20230607
  Receipt Date: 20230607
  Transmission Date: 20230721
  Serious: Yes (Other)
  Sender: FDA-Public Use
  Company Number: DE-002147023-PHHY2019DE036948

PATIENT
  Age: 52 Year
  Sex: Male
  Weight: 65 kg

DRUGS (20)
  1. RUXOLITINIB [Suspect]
     Active Substance: RUXOLITINIB
     Indication: Primary myelofibrosis
     Dosage: 20 MG, BID
     Route: 065
     Dates: start: 201805, end: 20181002
  2. RUXOLITINIB [Suspect]
     Active Substance: RUXOLITINIB
     Indication: Myelodysplastic syndrome
     Dosage: 15 MG, BID
     Route: 065
     Dates: start: 20181003, end: 20181018
  3. RUXOLITINIB [Suspect]
     Active Substance: RUXOLITINIB
     Dosage: 10 MG, BID
     Route: 065
     Dates: start: 20181019
  4. HYDROXYUREA [Suspect]
     Active Substance: HYDROXYUREA
     Indication: Myelodysplastic syndrome
     Dosage: 500 MG, QD
     Route: 065
     Dates: start: 201805, end: 20180906
  5. HYDROXYUREA [Suspect]
     Active Substance: HYDROXYUREA
     Indication: Primary myelofibrosis
     Dosage: 500 MG, BID
     Route: 065
     Dates: start: 20180907, end: 20180916
  6. HYDROXYUREA [Suspect]
     Active Substance: HYDROXYUREA
     Dosage: 500 MG, QD
     Route: 065
     Dates: start: 20180917, end: 20180922
  7. HYDROXYUREA [Suspect]
     Active Substance: HYDROXYUREA
     Dosage: 500 MG, TID
     Route: 065
     Dates: start: 20180923, end: 20180924
  8. HYDROXYUREA [Suspect]
     Active Substance: HYDROXYUREA
     Dosage: 500 MG, BID
     Route: 065
     Dates: start: 20180925, end: 20181011
  9. HYDROXYUREA [Suspect]
     Active Substance: HYDROXYUREA
     Dosage: 500 MG 3X WEEKLY + 1000 MG 4X WEEKLY
     Route: 065
     Dates: start: 20181013, end: 20181023
  10. HYDROXYUREA [Suspect]
     Active Substance: HYDROXYUREA
     Dosage: 500 MG, BID
     Route: 065
     Dates: start: 20181024
  11. EXJADE [Suspect]
     Active Substance: DEFERASIROX
     Indication: Myelodysplastic syndrome
     Dosage: 21 MG/KG (BODYWEIGHT/DAY=4 TABLETS A 360MG)
     Route: 065
     Dates: start: 20180810, end: 20190123
  12. EXJADE [Suspect]
     Active Substance: DEFERASIROX
     Indication: Primary myelofibrosis
     Dosage: 26.5 MG/KG (BODYWEIGHT/DAY=5 TABLETS A 360MG)
     Route: 065
     Dates: start: 20190124
  13. ENBREL [Concomitant]
     Active Substance: ETANERCEPT
     Indication: Rheumatoid arthritis
     Dosage: 7.14 MG, BIW
     Route: 065
     Dates: start: 201805, end: 20180902
  14. POLYETHYLENE GLYCOLS [Concomitant]
     Active Substance: POLYETHYLENE GLYCOLS
     Indication: Large intestinal obstruction
     Dosage: 13.7 G, PRN
     Route: 065
     Dates: start: 201805
  15. PREDNISOLONE [Concomitant]
     Active Substance: PREDNISOLONE
     Indication: Rheumatoid arthritis
     Dosage: 5 MG, QD
     Route: 065
     Dates: start: 201805, end: 20180902
  16. PREDNISOLONE [Concomitant]
     Active Substance: PREDNISOLONE
     Dosage: 7.5 MG, EVERY 2 DAYS (3.75 MG)
     Route: 065
     Dates: start: 20180903
  17. PANTOPRAZOLE [Concomitant]
     Active Substance: PANTOPRAZOLE
     Indication: Product used for unknown indication
     Dosage: 40 MG, QD
     Route: 065
     Dates: start: 201805
  18. ALLOPURINOL [Concomitant]
     Active Substance: ALLOPURINOL
     Indication: Product used for unknown indication
     Dosage: 100 MG, QD
     Route: 065
     Dates: start: 201805
  19. FRESUBIN PROTEIN ENERGY [Concomitant]
     Indication: Cachexia
     Dosage: 2 DF, QD
     Route: 065
     Dates: start: 201805
  20. TORSEMIDE [Concomitant]
     Active Substance: TORSEMIDE
     Indication: Rheumatoid arthritis
     Dosage: 10 MG, QD
     Route: 065
     Dates: start: 201805

REACTIONS (4)
  - Leukocytosis [Not Recovered/Not Resolved]
  - Concomitant disease aggravated [Not Recovered/Not Resolved]
  - Thrombocytopenia [Not Recovered/Not Resolved]
  - Haemoglobin decreased [Unknown]

NARRATIVE: CASE EVENT DATE: 20180820
